FAERS Safety Report 5520176-2 (Version None)
Quarter: 2007Q4

REPORT INFORMATION
  Report Type: 
  Country: None (occurrence: None)
  Receive Date: 20071116
  Receipt Date: 20071115
  Transmission Date: 20080405
  Serious: Yes (Life-Threatening, Other)
  Sender: FDA-Public Use
  Company Number: FR-BOEHRINGER INGELHEIM PHARMACEUTICALS, INC.-2007-FF-00871FF

PATIENT
  Sex: Female
  Weight: 78 kg

DRUGS (4)
  1. SPIRIVA [Suspect]
     Indication: CHRONIC OBSTRUCTIVE PULMONARY DISEASE
     Route: 055
     Dates: start: 20070401, end: 20070720
  2. FORADIL [Concomitant]
     Indication: CHRONIC OBSTRUCTIVE PULMONARY DISEASE
     Route: 055
     Dates: start: 20000101
  3. HYDROCORTISONE [Concomitant]
     Indication: RENAL FAILURE
     Route: 048
     Dates: start: 19990101
  4. ANTIHISTAMINIC [Concomitant]

REACTIONS (3)
  - ANGIOEDEMA [None]
  - MOUTH ULCERATION [None]
  - PALATAL DISORDER [None]
